FAERS Safety Report 17235457 (Version 1)
Quarter: 2020Q1

REPORT INFORMATION
  Report Type: Spontaneous
  Country: DE (occurrence: DE)
  Receive Date: 20200106
  Receipt Date: 20200106
  Transmission Date: 20200409
  Serious: Yes (Hospitalization)
  Sender: FDA-Public Use
  Company Number: DE-TEVA-2019-DE-1162040

PATIENT
  Age: 25 Year
  Sex: Male
  Weight: 61.7 kg

DRUGS (14)
  1. QUILONUM RETARD [Suspect]
     Active Substance: LITHIUM CARBONATE
     Dosage: 500 MG PER DAY
     Dates: start: 20190402
  2. QUILONUM RETARD [Suspect]
     Active Substance: LITHIUM CARBONATE
     Dosage: 900 MG PER DAY
     Dates: start: 20190219, end: 20190315
  3. QUILONUM RETARD [Suspect]
     Active Substance: LITHIUM CARBONATE
     Dosage: 675 MG PER DAY
     Dates: start: 20190205, end: 20190218
  4. LAMOTRIGIN [Concomitant]
     Active Substance: LAMOTRIGINE
     Dosage: 50 MG PER DAY
     Dates: start: 20190319
  5. ERGENYL [Concomitant]
     Active Substance: VALPROIC ACID
     Dates: start: 20190228, end: 20190308
  6. QUILONUM RETARD [Suspect]
     Active Substance: LITHIUM CARBONATE
     Dosage: 225 MG PER DAY
     Dates: start: 20190321, end: 20190401
  7. ERGENYL [Concomitant]
     Active Substance: VALPROIC ACID
     Dates: start: 2016, end: 20180802
  8. QUILONUM RETARD [Suspect]
     Active Substance: LITHIUM CARBONATE
     Dosage: 450 MG PER DAY
     Dates: start: 20190129, end: 20190204
  9. LAMOTRIGIN [Concomitant]
     Active Substance: LAMOTRIGINE
     Dates: start: 20190301, end: 20190315
  10. ERGENYL [Concomitant]
     Active Substance: VALPROIC ACID
     Dates: start: 20181227, end: 20190227
  11. LAMOTRIGIN [Concomitant]
     Active Substance: LAMOTRIGINE
     Dates: start: 20190212, end: 20190228
  12. ERGENYL [Concomitant]
     Active Substance: VALPROIC ACID
     Dosage: 1600 MG PER DAY
     Dates: start: 2015, end: 2016
  13. VALPROAT [Suspect]
     Active Substance: VALPROATE SODIUM
     Dosage: 1000 MG PER DAY
     Dates: start: 20190309, end: 20190315
  14. ERGENYL [Concomitant]
     Active Substance: VALPROIC ACID
     Dates: start: 20180803, end: 20181226

REACTIONS (1)
  - Blood creatine phosphokinase increased [Recovered/Resolved]

NARRATIVE: CASE EVENT DATE: 20190313
